FAERS Safety Report 19232749 (Version 3)
Quarter: 2021Q2

REPORT INFORMATION
  Report Type: Spontaneous
  Country: PT (occurrence: PT)
  Receive Date: 20210507
  Receipt Date: 20210615
  Transmission Date: 20210717
  Serious: Yes (Hospitalization, Other)
  Sender: FDA-Public Use
  Company Number: PT-009507513-2105PRT001347

PATIENT
  Age: 45 Year
  Sex: Male

DRUGS (1)
  1. KEYTRUDA [Suspect]
     Active Substance: PEMBROLIZUMAB
     Indication: LUNG ADENOCARCINOMA STAGE III
     Dosage: 200 MG, EVERY 3 WEEKS
     Dates: start: 20180807, end: 20201209

REACTIONS (10)
  - Back pain [Recovered/Resolved]
  - Hyponatraemia [Unknown]
  - Confusional state [Recovered/Resolved]
  - Therapy partial responder [Unknown]
  - Asthenia [Recovered/Resolved]
  - Adrenocorticotropic hormone deficiency [Unknown]
  - Urinary tract infection [Recovered/Resolved]
  - Dizziness [Recovered/Resolved]
  - Immune-mediated hypophysitis [Unknown]
  - Hypothyroidism [Unknown]
